FAERS Safety Report 8173199-1 (Version None)
Quarter: 2012Q1

REPORT INFORMATION
  Report Type: 
  Country: None (occurrence: None)
  Receive Date: 20120229
  Receipt Date: 20110727
  Transmission Date: 20120608
  Serious: No
  Sender: FDA-Public Use
  Company Number: US-GLAXOSMITHKLINE-A0939411A

PATIENT
  Age: 36 Year
  Sex: Female
  Weight: 49.5 kg

DRUGS (5)
  1. PRILOSEC [Concomitant]
     Indication: ILL-DEFINED DISORDER
     Dosage: 20MGD PER DAY
     Route: 048
  2. LORATADINE [Concomitant]
     Indication: SEASONAL ALLERGY
     Dosage: 10MGD PER DAY
     Route: 048
  3. GSK AUTOINJECTOR [Suspect]
     Indication: MIGRAINE
     Route: 058
     Dates: start: 20110601
  4. SUMATRIPTAN [Suspect]
     Indication: MIGRAINE
     Dosage: 6MG AS REQUIRED
     Route: 058
     Dates: start: 20110601
  5. IMITREX [Concomitant]
     Indication: MIGRAINE
     Route: 048

REACTIONS (2)
  - PRODUCT QUALITY ISSUE [None]
  - FOREIGN BODY [None]
